FAERS Safety Report 5001500-6 (Version None)
Quarter: 2006Q2

REPORT INFORMATION
  Report Type: 
  Country: None (occurrence: None)
  Receive Date: 20060512
  Receipt Date: 20060505
  Transmission Date: 20061013
  Serious: Yes (Hospitalization, Disabling)
  Sender: FDA-Public Use
  Company Number: US-MERCK-0605USA01622

PATIENT
  Age: 43 Year
  Sex: Female
  Weight: 75 kg

DRUGS (4)
  1. VIOXX [Suspect]
     Indication: PAIN
     Route: 048
     Dates: start: 20010101, end: 20021201
  2. ASPIRIN [Concomitant]
     Route: 065
  3. ELAVIL [Concomitant]
     Route: 065
  4. AXID [Concomitant]
     Route: 065

REACTIONS (3)
  - LIMB INJURY [None]
  - MYOCARDIAL INFARCTION [None]
  - PAIN IN EXTREMITY [None]
